FAERS Safety Report 17622381 (Version 1)
Quarter: 2020Q2

REPORT INFORMATION
  Report Type: Spontaneous
  Country: US (occurrence: US)
  Receive Date: 20200401
  Receipt Date: 20200401
  Transmission Date: 20200713
  Serious: No
  Sender: FDA-Public Use
  Company Number: None

PATIENT
  Age: 51 Year
  Sex: Male
  Weight: 119.29 kg

DRUGS (1)
  1. SEMAGLUTIDE (SEMAGLUTIDE 1MG/0.75ML INJ, SOLN, PEN 1.5ML [Suspect]
     Active Substance: SEMAGLUTIDE
     Indication: DIABETES MELLITUS
     Route: 058
     Dates: start: 20191106, end: 20191224

REACTIONS (4)
  - Dyspepsia [None]
  - Nausea [None]
  - Vomiting [None]
  - Eructation [None]

NARRATIVE: CASE EVENT DATE: 20200327
